FAERS Safety Report 8465272-5 (Version None)
Quarter: 2012Q2

REPORT INFORMATION
  Report Type: 
  Country: None (occurrence: None)
  Receive Date: 20120626
  Receipt Date: 20120621
  Transmission Date: 20120825
  Serious: Yes (Hospitalization)
  Sender: FDA-Public Use
  Company Number: PHEH2012US006507

PATIENT
  Sex: Female
  Weight: 58.05 kg

DRUGS (12)
  1. MULTI-VITAMIN [Concomitant]
  2. SIMVASTATIN [Concomitant]
  3. TOBI [Suspect]
     Indication: BRONCHIECTASIS
     Dosage: 300 MG NEBULISATION DAILY EVERY OTHER MONTH
     Dates: start: 20111217
  4. ALBUTEROL [Concomitant]
  5. FUROSEMIDE [Concomitant]
  6. METOPROLOL TARTRATE [Concomitant]
  7. CALCIUM [Concomitant]
  8. VITAMIN D [Concomitant]
  9. ADVAIR DISKUS 100/50 [Concomitant]
  10. SPIRIVA [Concomitant]
  11. PAREXA [Concomitant]
  12. ASPIRIN [Concomitant]

REACTIONS (3)
  - PNEUMONIA [None]
  - HYPOACUSIS [None]
  - DRUG ADMINISTRATION ERROR [None]
